FAERS Safety Report 5809602-9 (Version None)
Quarter: 2008Q3

REPORT INFORMATION
  Report Type: 
  Country: None (occurrence: None)
  Receive Date: 20080709
  Receipt Date: 20080625
  Transmission Date: 20090109
  Serious: Yes (Hospitalization, Other)
  Sender: FDA-Public Use
  Company Number: CIP08001121

PATIENT
  Age: 69 Year
  Sex: Female

DRUGS (5)
  1. DANTRIUM [Suspect]
     Indication: NEUROLEPTIC MALIGNANT SYNDROME
     Dosage: 40 MG DAILY, IV NOS
     Route: 042
     Dates: start: 20080521, end: 20080522
  2. CAPTOPRIL [Concomitant]
  3. NELBON (NITRAZEPAM) [Concomitant]
  4. PAXIL [Concomitant]
  5. DANTRIUM (DANTROLENE SODIUM) CAPSULES [Suspect]
     Indication: NEUROLEPTIC MALIGNANT SYNDROME
     Dosage: 25 MG THREE TIMES DAILY , ORAL
     Route: 048
     Dates: start: 20080523, end: 20080527

REACTIONS (1)
  - HYPOKALAEMIA [None]
